FAERS Safety Report 5363148-3 (Version None)
Quarter: 2007Q2

REPORT INFORMATION
  Report Type: 
  Country: None (occurrence: None)
  Receive Date: 20070618
  Receipt Date: 20070618
  Transmission Date: 20071010
  Serious: Yes (Hospitalization)
  Sender: FDA-Public Use
  Company Number: None

PATIENT
  Age: 59 Year
  Sex: Male

DRUGS (1)
  1. THALIDOMIDE [Suspect]
     Indication: AMYOTROPHIC LATERAL SCLEROSIS
     Dosage: 400MG/DAY DAILY PO
     Route: 048
     Dates: start: 20070129

REACTIONS (7)
  - ASTHENIA [None]
  - DISEASE PROGRESSION [None]
  - DYSPHONIA [None]
  - DYSPNOEA [None]
  - MUSCULOSKELETAL STIFFNESS [None]
  - PULMONARY FUNCTION TEST DECREASED [None]
  - VITAL CAPACITY DECREASED [None]
